FAERS Safety Report 20631922 (Version 1)
Quarter: 2022Q1

REPORT INFORMATION
  Report Type: Spontaneous
  Country: US (occurrence: US)
  Receive Date: 20220324
  Receipt Date: 20220324
  Transmission Date: 20220423
  Serious: Yes (Other)
  Sender: FDA-Public Use
  Company Number: US-UCBSA-2022016310

PATIENT
  Age: 36 Year
  Sex: Female

DRUGS (1)
  1. VIMPAT [Suspect]
     Active Substance: LACOSAMIDE
     Indication: Product used for unknown indication
     Dosage: UNK
     Dates: start: 202111

REACTIONS (2)
  - Heavy menstrual bleeding [Unknown]
  - Alopecia [Unknown]

NARRATIVE: CASE EVENT DATE: 20220224
